FAERS Safety Report 6876845-5 (Version None)
Quarter: 2010Q3

REPORT INFORMATION
  Report Type: 
  Country: None (occurrence: None)
  Receive Date: 20100727
  Receipt Date: 20100720
  Transmission Date: 20110219
  Serious: Yes (Life-Threatening, Hospitalization, Other)
  Sender: FDA-Public Use
  Company Number: GB-ROCHE-715728

PATIENT
  Sex: Female
  Weight: 81 kg

DRUGS (2)
  1. CAPECITABINE [Suspect]
     Dosage: DOSE: 1000MG/M2 BD D1-14 Q21; FREQUENCY: BD DAYS 1-14; STOP DATE: 01 JULY 2010 DAY 8 OF CYCLE 7
     Route: 048
     Dates: start: 20100211, end: 20100701
  2. OXALIPLATIN [Suspect]
     Dosage: FREQUENCY: 21 D; ROUTE REPORTED AS:IVI
     Route: 042
     Dates: start: 20100211, end: 20100624

REACTIONS (7)
  - ASCITES [None]
  - CORONARY ARTERY DISEASE [None]
  - DEHYDRATION [None]
  - DIARRHOEA [None]
  - HEPATIC FAILURE [None]
  - RENAL FAILURE [None]
  - RESPIRATORY FAILURE [None]
